FAERS Safety Report 6342112-1 (Version None)
Quarter: 2009Q3

REPORT INFORMATION
  Report Type: 
  Country: None (occurrence: None)
  Receive Date: 20090903
  Receipt Date: 20090903
  Transmission Date: 20100115
  Serious: Yes (Other)
  Sender: FDA-Public Use
  Company Number: None

PATIENT
  Age: 77 Year
  Sex: Female
  Weight: 57.1532 kg

DRUGS (1)
  1. GABAPENTIN [Suspect]
     Indication: POST HERPETIC NEURALGIA
     Dosage: ONE CAPSULE THREE TIMES DAILY BY MOUTH
     Route: 048
     Dates: start: 20080606, end: 20080709

REACTIONS (3)
  - GAIT DISTURBANCE [None]
  - MUSCULOSKELETAL DISORDER [None]
  - NECK PAIN [None]
